FAERS Safety Report 6055518-5 (Version None)
Quarter: 2009Q1

REPORT INFORMATION
  Report Type: 
  Country: None (occurrence: None)
  Receive Date: 20090128
  Receipt Date: 20090122
  Transmission Date: 20090719
  Serious: Yes (Other)
  Sender: FDA-Public Use
  Company Number: A0764870A

PATIENT
  Age: 52 Year
  Sex: Female
  Weight: 45.9 kg

DRUGS (3)
  1. LAPATINIB [Suspect]
     Dosage: 750MG PER DAY
     Route: 048
     Dates: start: 20081120
  2. DOCETAXEL [Suspect]
     Dosage: 100MGM2 CYCLIC
     Route: 042
     Dates: start: 20081120
  3. TRASTUZUMAB [Suspect]
     Dosage: 4MGK WEEKLY
     Route: 042
     Dates: start: 20081120

REACTIONS (1)
  - NEUTROPENIA [None]
